FAERS Safety Report 8283241-5 (Version None)
Quarter: 2012Q2

REPORT INFORMATION
  Report Type: 
  Country: None (occurrence: None)
  Receive Date: 20120413
  Receipt Date: 20120410
  Transmission Date: 20120825
  Serious: Yes (Hospitalization)
  Sender: FDA-Public Use
  Company Number: US-MERCK-1204USA01618

PATIENT
  Age: 76 Year
  Sex: Female

DRUGS (9)
  1. JANUVIA [Suspect]
     Indication: TYPE 2 DIABETES MELLITUS
     Route: 048
  2. FERRUMPOLA [Concomitant]
     Route: 065
  3. PRAVACHOL [Concomitant]
     Route: 065
  4. FUROSEMIDE [Concomitant]
     Route: 065
  5. VITAMINS (UNSPECIFIED) [Concomitant]
     Route: 065
  6. ASPIRIN [Concomitant]
     Route: 065
  7. CYANOCOBALAMIN [Concomitant]
     Route: 065
  8. GLIPIZIDE [Concomitant]
     Route: 065
  9. HYDRALAZINE [Concomitant]
     Route: 065

REACTIONS (4)
  - SKIN DISORDER [None]
  - ERYTHEMA [None]
  - RASH MACULAR [None]
  - TINEA INFECTION [None]
